FAERS Safety Report 5201693-1 (Version None)
Quarter: 2006Q4

REPORT INFORMATION
  Report Type: 
  Country: None (occurrence: None)
  Receive Date: 20061012
  Receipt Date: 20060309
  Transmission Date: 20070319
  Serious: Yes (Other)
  Sender: FDA-Public Use
  Company Number: 13677

PATIENT
  Age: 17 Year
  Sex: Female

DRUGS (7)
  1. METHOTREXATE [Suspect]
     Indication: B PRECURSOR TYPE ACUTE LEUKAEMIA
     Dosage: 12 MG FREQ UNK IT
     Route: 042
  2. VINCRISTINE [Concomitant]
  3. ELSPAR [Concomitant]
  4. PREDNISONE [Concomitant]
  5. DAUNORUBICIN HCL [Concomitant]
  6. MERCAPTOPURINE [Concomitant]
  7. CYCLOPHOSPHAMIDE [Concomitant]

REACTIONS (1)
  - NEUROTOXICITY [None]
